FAERS Safety Report 5667886-4 (Version None)
Quarter: 2008Q1

REPORT INFORMATION
  Report Type: 
  Country: None (occurrence: None)
  Receive Date: 20080315
  Receipt Date: 20080205
  Transmission Date: 20080703
  Serious: Yes (Other)
  Sender: FDA-Public Use
  Company Number: US-ABBOTT-08P-163-0437247-00

PATIENT
  Sex: Male
  Weight: 54.48 kg

DRUGS (5)
  1. HUMIRA [Suspect]
     Indication: CROHN'S DISEASE
     Route: 058
     Dates: start: 20071001, end: 20080123
  2. HUMIRA [Suspect]
     Indication: ARTHRITIS
  3. CIPROFLOXACIN [Concomitant]
     Indication: COLOSTOMY INFECTION
  4. XIAFAN ANTIBIOTIC [Concomitant]
     Indication: COLOSTOMY INFECTION
  5. UNKNOWN ALLERGY MEDICATION [Concomitant]
     Indication: DRUG USE FOR UNKNOWN INDICATION

REACTIONS (5)
  - ANAEMIA [None]
  - DEHYDRATION [None]
  - EPIDIDYMITIS [None]
  - PAIN [None]
  - URINARY TRACT INFECTION [None]
